FAERS Safety Report 4385126-3 (Version None)
Quarter: 2004Q2

REPORT INFORMATION
  Report Type: 
  Country: None (occurrence: None)
  Receive Date: 20040622
  Receipt Date: 20040608
  Transmission Date: 20050107
  Serious: Yes (Death, Other)
  Sender: FDA-Public Use
  Company Number: FR-JNJFOC-20040603940

PATIENT

DRUGS (2)
  1. INFLIXIMAB (INFLIXIMAB, RECOMBINANT) LYOPHILIZED POWDER [Suspect]
     Indication: HEPATITIS ALCOHOLIC
     Dosage: 10 MG/KG INTRAVENOUS
     Route: 042
  2. PREDNISOLONE [Concomitant]

REACTIONS (1)
  - PNEUMONIA [None]
